FAERS Safety Report 16047972 (Version 1)
Quarter: 2019Q1

REPORT INFORMATION
  Report Type: Spontaneous
  Country: US (occurrence: US)
  Receive Date: 20190208
  Receipt Date: 20190208
  Transmission Date: 20190418
  Serious: Yes (Hospitalization)
  Sender: FDA-Public Use
  Company Number: None

PATIENT
  Age: 69 Year
  Sex: Female

DRUGS (15)
  1. CAPECITABINE 500MG [Suspect]
     Active Substance: CAPECITABINE
     Indication: COLON CANCER
     Route: 048
     Dates: start: 20180907
  2. HYDROCODONE BITARTRATE AND ACETAMINOPHEN [Concomitant]
     Active Substance: ACETAMINOPHEN\HYDROCODONE BITARTRATE
  3. LATANAPROST [Concomitant]
     Active Substance: LATANOPROST
  4. RANITIDINE. [Concomitant]
     Active Substance: RANITIDINE
  5. BRIMONIDINE [Concomitant]
     Active Substance: BRIMONIDINE TARTRATE
  6. FEROSUL [Concomitant]
  7. MORPHINE [Suspect]
     Active Substance: MORPHINE
  8. AMLODIPINE [Concomitant]
     Active Substance: AMLODIPINE BESYLATE
  9. DICYCLOMINE [Concomitant]
     Active Substance: DICYCLOMINE HYDROCHLORIDE
  10. GABAPENTIN. [Concomitant]
     Active Substance: GABAPENTIN
  11. NORTRIPTYLINE [Concomitant]
     Active Substance: NORTRIPTYLINE
  12. ONDANSETRON [Concomitant]
     Active Substance: ONDANSETRON
  13. LORAZEPAM. [Concomitant]
     Active Substance: LORAZEPAM
  14. PAROXETINE. [Concomitant]
     Active Substance: PAROXETINE
  15. TIMOLOL. [Concomitant]
     Active Substance: TIMOLOL

REACTIONS (4)
  - Skin odour abnormal [None]
  - Feeling hot [None]
  - Drug interaction [None]
  - Abdominal pain upper [None]

NARRATIVE: CASE EVENT DATE: 20190205
